FAERS Safety Report 9317545 (Version 1)
Quarter: 2013Q2

REPORT INFORMATION
  Report Type: Spontaneous
  Country: IT (occurrence: None)
  Receive Date: 20130524
  Receipt Date: 20130524
  Transmission Date: 20140414
  Serious: Yes (Other)
  Sender: FDA-Public Use
  Company Number: AUR-APL-2013-04212

PATIENT
  Sex: Female

DRUGS (2)
  1. LEVOFLOXACIN (LEVOFLOXACIN) [Suspect]
  2. HYDROCHLOROTHIAZIDE (HYDROCHLOROTHIAZIDE) [Suspect]

REACTIONS (2)
  - Renal failure chronic [None]
  - Condition aggravated [None]
